FAERS Safety Report 17605285 (Version 1)
Quarter: 2020Q1

REPORT INFORMATION
  Report Type: Spontaneous
  Country: US (occurrence: US)
  Receive Date: 20200331
  Receipt Date: 20200331
  Transmission Date: 20200409
  Serious: Yes (Other)
  Sender: FDA-Public Use
  Company Number: None

PATIENT
  Age: 62 Year
  Sex: Female
  Weight: 70.65 kg

DRUGS (8)
  1. TRAZODONE [Concomitant]
     Active Substance: TRAZODONE HYDROCHLORIDE
  2. OXYCODONE ACETAMINOPHEN 10-325 [Suspect]
     Active Substance: ACETAMINOPHEN\OXYCODONE HYDROCHLORIDE
     Indication: ANALGESIC THERAPY
     Route: 048
     Dates: start: 20200325, end: 20200331
  3. VITAMIN B6 [Concomitant]
     Active Substance: PYRIDOXINE HYDROCHLORIDE
  4. SIMVASTATIN. [Concomitant]
     Active Substance: SIMVASTATIN
  5. NORVASC [Concomitant]
     Active Substance: AMLODIPINE BESYLATE
  6. NATURE^S MEASURE MELATONIN [Concomitant]
  7. CVS WOMEN^S MULTIVITAMIN [Concomitant]
  8. DULOXETINE HCL [Concomitant]
     Active Substance: DULOXETINE HYDROCHLORIDE

REACTIONS (4)
  - Drug ineffective [None]
  - Headache [None]
  - Nausea [None]
  - Abdominal pain [None]

NARRATIVE: CASE EVENT DATE: 20200325
